FAERS Safety Report 24456358 (Version 2)
Quarter: 2024Q4

REPORT INFORMATION
  Report Type: Report from Study
  Country: JP (occurrence: JP)
  Receive Date: 20241017
  Receipt Date: 20241018
  Transmission Date: 20250114
  Serious: No
  Sender: ROCHE
  Company Number: JP-ROCHE-3510761

PATIENT
  Sex: Female
  Weight: 73.0 kg

DRUGS (2)
  1. RITUXAN [Suspect]
     Active Substance: RITUXIMAB
     Indication: Systemic scleroderma
     Dosage: 375 MG/M2?SUBSEQUENT DOSES 11/NOV/2022, 18/NOV/2022 , 25/NOV/2022, 18/MAY2023, 25/MAY/2023, 01/JUN/2
     Route: 041
     Dates: start: 20221104
  2. OFEV [Concomitant]
     Active Substance: NINTEDANIB
     Indication: Systemic scleroderma
     Route: 048
     Dates: start: 20221013, end: 20221028

REACTIONS (1)
  - Infusion related reaction [Recovering/Resolving]

NARRATIVE: CASE EVENT DATE: 20230518
